FAERS Safety Report 7853506-7 (Version None)
Quarter: 2011Q3

REPORT INFORMATION
  Report Type: 
  Country: None (occurrence: None)
  Receive Date: 20110915
  Receipt Date: 20101210
  Transmission Date: 20111222
  Serious: Yes (Other)
  Sender: FDA-Public Use
  Company Number: 2010027125

PATIENT

DRUGS (1)
  1. PRIVIGEN [Suspect]
     Indication: URTICARIA CHRONIC
     Dosage: 2000 MG/KG TOTAL
     Route: 042

REACTIONS (4)
  - MENINGITIS ASEPTIC [None]
  - MUSCULOSKELETAL STIFFNESS [None]
  - PHOTOPHOBIA [None]
  - HEADACHE [None]
